FAERS Safety Report 5154514-X (Version None)
Quarter: 2006Q4

REPORT INFORMATION
  Report Type: 
  Country: None (occurrence: None)
  Receive Date: 20061114
  Receipt Date: 20061031
  Transmission Date: 20070319
  Serious: Yes (Other)
  Sender: FDA-Public Use
  Company Number: 2006126662

PATIENT
  Age: 59 Year
  Sex: Female
  Weight: 49.5 kg

DRUGS (10)
  1. VFEND [Suspect]
     Indication: BRONCHOPULMONARY ASPERGILLOSIS
     Dosage: SEE IMAGE
     Route: 048
     Dates: start: 20061001, end: 20061001
  2. VFEND [Suspect]
     Indication: BRONCHOPULMONARY ASPERGILLOSIS
     Dosage: SEE IMAGE
     Route: 048
     Dates: start: 20060930
  3. TACROLIMUS      (TACROLIMUS) [Concomitant]
  4. PROGRAF [Concomitant]
  5. PREDNISOLONE [Concomitant]
  6. MUCOSOLVAN                (AMBROXOL HYDROCHLORIDE) [Concomitant]
  7. GASTROM           (ECABET MONOSODIUM) [Concomitant]
  8. SULFAMETHOXAZOLE + TRIMETHOPRIM [Concomitant]
  9. HOKUNALIN            (TULOBUTEROL HYDROCHLORIDE) [Concomitant]
  10. ROXATIDINE ACETATE HCL [Concomitant]

REACTIONS (4)
  - BLOOD BILIRUBIN INCREASED [None]
  - GAMMA-GLUTAMYLTRANSFERASE INCREASED [None]
  - HEPATIC ENZYME INCREASED [None]
  - INAPPROPRIATE ANTIDIURETIC HORMONE SECRETION [None]
